FAERS Safety Report 4830924-2 (Version None)
Quarter: 2005Q4

REPORT INFORMATION
  Report Type: 
  Country: None (occurrence: None)
  Receive Date: 20051114
  Receipt Date: 20051028
  Transmission Date: 20060501
  Serious: Yes (Other)
  Sender: FDA-Public Use
  Company Number: 2005-0008875

PATIENT
  Sex: Male

DRUGS (1)
  1. VIREAD [Suspect]

REACTIONS (1)
  - FACIAL PALSY [None]
